FAERS Safety Report 10155511 (Version 1)
Quarter: 2014Q2

REPORT INFORMATION
  Report Type: Spontaneous
  Country: US (occurrence: US)
  Receive Date: 20140506
  Receipt Date: 20140506
  Transmission Date: 20141212
  Serious: No
  Sender: FDA-Public Use
  Company Number: US-PFIZER INC-2014121471

PATIENT
  Sex: Female

DRUGS (4)
  1. LEVOXYL [Suspect]
     Indication: THYROID DISORDER
     Dosage: UNK
  2. LEVOXYL [Suspect]
     Dosage: 75 UG, DAILY
     Dates: start: 201404, end: 201404
  3. SIMBRINZA [Concomitant]
     Indication: GLAUCOMA
     Dosage: 1 GTT, 2X/DAY
  4. PROPRANOLOL [Concomitant]
     Indication: TACHYCARDIA
     Dosage: 10 MG, 2X/DAY

REACTIONS (1)
  - Malaise [Unknown]
